FAERS Safety Report 7367748-0 (Version None)
Quarter: 2011Q1

REPORT INFORMATION
  Report Type: 
  Country: None (occurrence: None)
  Receive Date: 20110322
  Receipt Date: 20110318
  Transmission Date: 20110831
  Serious: Yes (Death, Hospitalization)
  Sender: FDA-Public Use
  Company Number: US-PFIZER INC-2011060459

PATIENT
  Sex: Male
  Weight: 81.633 kg

DRUGS (4)
  1. PLAVIX [Concomitant]
  2. ACETYLSALICYLIC ACID [Concomitant]
  3. CELEBREX [Suspect]
     Indication: MOVEMENT DISORDER
     Dosage: UNK
     Route: 048
     Dates: start: 20090101, end: 20110220
  4. ARICEPT [Concomitant]

REACTIONS (1)
  - RENAL FAILURE [None]
